FAERS Safety Report 11300705 (Version 1)
Quarter: 2015Q3

REPORT INFORMATION
  Report Type: Spontaneous
  Country: US (occurrence: US)
  Receive Date: 20150722
  Receipt Date: 20150722
  Transmission Date: 20151125
  Serious: No
  Sender: FDA-Public Use
  Company Number: US-ELI_LILLY_AND_COMPANY-US201210008149

PATIENT
  Sex: Male
  Weight: 82 kg

DRUGS (6)
  1. LISINOPRIL. [Concomitant]
     Active Substance: LISINOPRIL
  2. EFFIENT [Suspect]
     Active Substance: PRASUGREL HYDROCHLORIDE
     Indication: CORONARY ARTERY BYPASS
     Dosage: 10 MG, UNKNOWN
     Route: 065
     Dates: start: 201203
  3. CRESTOR [Concomitant]
     Active Substance: ROSUVASTATIN CALCIUM
  4. CARVEDILOL. [Concomitant]
     Active Substance: CARVEDILOL
  5. ASPIRIN. [Concomitant]
     Active Substance: ASPIRIN
  6. FAMOTIDINE. [Concomitant]
     Active Substance: FAMOTIDINE

REACTIONS (2)
  - Off label use [Unknown]
  - Tooth infection [Unknown]
